FAERS Safety Report 6382281-0 (Version None)
Quarter: 2009Q3

REPORT INFORMATION
  Report Type: 
  Country: None (occurrence: None)
  Receive Date: 20090925
  Receipt Date: 20090915
  Transmission Date: 20100115
  Serious: Yes (Hospitalization, Other)
  Sender: FDA-Public Use
  Company Number: TPA2009A02705

PATIENT
  Age: 61 Year
  Sex: Male
  Weight: 90.9 kg

DRUGS (14)
  1. PREVACID [Suspect]
     Indication: GASTRIC ULCER
     Dosage: 30 MG, 1 IN 1 D, PER ORAL; 30 MG 1 IN 1 D, PER ORAL
     Route: 048
     Dates: start: 19940101, end: 20060101
  2. PREVACID [Suspect]
     Indication: GASTROOESOPHAGEAL REFLUX DISEASE
     Dosage: 30 MG, 1 IN 1 D, PER ORAL; 30 MG 1 IN 1 D, PER ORAL
     Route: 048
     Dates: start: 19940101, end: 20060101
  3. PREVACID [Suspect]
     Indication: HIATUS HERNIA
     Dosage: 30 MG, 1 IN 1 D, PER ORAL; 30 MG 1 IN 1 D, PER ORAL
     Route: 048
     Dates: start: 19940101, end: 20060101
  4. PREVACID [Suspect]
     Indication: GASTRIC ULCER
     Dosage: 30 MG, 1 IN 1 D, PER ORAL; 30 MG 1 IN 1 D, PER ORAL
     Route: 048
     Dates: start: 20060101
  5. PREVACID [Suspect]
     Indication: GASTROOESOPHAGEAL REFLUX DISEASE
     Dosage: 30 MG, 1 IN 1 D, PER ORAL; 30 MG 1 IN 1 D, PER ORAL
     Route: 048
     Dates: start: 20060101
  6. PREVACID [Suspect]
     Indication: HIATUS HERNIA
     Dosage: 30 MG, 1 IN 1 D, PER ORAL; 30 MG 1 IN 1 D, PER ORAL
     Route: 048
     Dates: start: 20060101
  7. TOPROL-XL [Concomitant]
  8. SIMVASTATIN [Concomitant]
  9. ASPIRIN [Concomitant]
  10. COUMADIN [Concomitant]
  11. LASIX [Concomitant]
  12. PLAVIX [Concomitant]
  13. ATIVAN [Concomitant]
  14. SOMA [Concomitant]

REACTIONS (8)
  - ABDOMINAL DISTENSION [None]
  - ABDOMINAL PAIN UPPER [None]
  - ANEURYSM [None]
  - GASTRIC DISORDER [None]
  - HERNIA [None]
  - MYOCARDIAL INFARCTION [None]
  - PRODUCT SUBSTITUTION ISSUE [None]
  - PULMONARY THROMBOSIS [None]
